FAERS Safety Report 20288669 (Version 1)
Quarter: 2022Q1

REPORT INFORMATION
  Report Type: Spontaneous
  Country: US (occurrence: None)
  Receive Date: 20220104
  Receipt Date: 20220104
  Transmission Date: 20220423
  Serious: Yes (Death)
  Sender: FDA-Public Use
  Company Number: US-ROCHE-2992329

PATIENT
  Sex: Male

DRUGS (1)
  1. ESBRIET [Suspect]
     Active Substance: PIRFENIDONE
     Indication: Dyspnoea
     Dosage: TAKE 1 TABLET BY MOUTH THREE TIMES A DAY
     Route: 048
     Dates: start: 20210908

REACTIONS (2)
  - Gastric disorder [Recovered/Resolved]
  - Death [Fatal]
